FAERS Safety Report 18281542 (Version 1)
Quarter: 2020Q3

REPORT INFORMATION
  Report Type: Spontaneous
  Country: DE (occurrence: DE)
  Receive Date: 20200918
  Receipt Date: 20200918
  Transmission Date: 20201103
  Serious: Yes (Hospitalization)
  Sender: FDA-Public Use
  Company Number: NVSC2020DE251749

PATIENT
  Age: 51 Year
  Sex: Female
  Weight: 54 kg

DRUGS (3)
  1. ETOPOSID [Suspect]
     Active Substance: ETOPOSIDE
     Indication: PRODUCT USED FOR UNKNOWN INDICATION
     Dosage: UNK (NK MG, LETZTE 17072020)
     Route: 065
  2. CARBOPLATIN. [Suspect]
     Active Substance: CARBOPLATIN
     Indication: PRODUCT USED FOR UNKNOWN INDICATION
     Dosage: UNK (NK MG, LETZTE 17072020)
     Route: 065
  3. NEULASTA [Suspect]
     Active Substance: PEGFILGRASTIM
     Indication: PRODUCT USED FOR UNKNOWN INDICATION
     Dosage: UNK (6 MG, LETZTE 17072020)
     Route: 065

REACTIONS (3)
  - Pyrexia [Unknown]
  - Condition aggravated [Unknown]
  - General physical health deterioration [Unknown]
